FAERS Safety Report 4363399-0 (Version None)
Quarter: 2004Q2

REPORT INFORMATION
  Report Type: 
  Country: None (occurrence: None)
  Receive Date: 20040524
  Receipt Date: 20040511
  Transmission Date: 20050107
  Serious: Yes (Other)
  Sender: FDA-Public Use
  Company Number: US-GLAXOSMITHKLINE-A0511579A

PATIENT
  Sex: Male

DRUGS (1)
  1. PAXIL [Suspect]
     Route: 048
     Dates: start: 20010301, end: 20010701

REACTIONS (12)
  - AFFECT LABILITY [None]
  - AGGRESSION [None]
  - ANORGASMIA [None]
  - AORTIC DISSECTION [None]
  - EMOTIONAL DISTRESS [None]
  - FEAR [None]
  - HAEMORRHAGE INTRACRANIAL [None]
  - HEADACHE [None]
  - HORNER'S SYNDROME [None]
  - ILL-DEFINED DISORDER [None]
  - OBSESSIVE THOUGHTS [None]
  - PERSONALITY CHANGE [None]
